FAERS Safety Report 5928901-3 (Version None)
Quarter: 2008Q3

REPORT INFORMATION
  Report Type: 
  Country: None (occurrence: None)
  Receive Date: 20080924
  Receipt Date: 20071002
  Transmission Date: 20090109
  Serious: Yes (Hospitalization, Other)
  Sender: FDA-Public Use
  Company Number: 2007090177

PATIENT
  Age: 18 Year
  Sex: Female
  Weight: 57 kg

DRUGS (4)
  1. FELBATOL [Suspect]
     Indication: EPILEPSY
     Dosage: (900-600-300 IN DIVIDED DOSES PER DAY)
     Dates: end: 20060601
  2. AUGMENTIN '125' [Concomitant]
  3. KEPPRA [Concomitant]
  4. KLONOPIN [Concomitant]

REACTIONS (10)
  - ADRENAL INSUFFICIENCY [None]
  - AGRANULOCYTOSIS [None]
  - CARDIAC FAILURE CONGESTIVE [None]
  - DIARRHOEA [None]
  - EAR PAIN [None]
  - LUNG INJURY [None]
  - PANCYTOPENIA [None]
  - RASH [None]
  - SEPSIS [None]
  - SPLENOMEGALY [None]
